FAERS Safety Report 7435484-8 (Version None)
Quarter: 2011Q2

REPORT INFORMATION
  Report Type: 
  Country: None (occurrence: None)
  Receive Date: 20110415
  Receipt Date: 20110401
  Transmission Date: 20111010
  Serious: Yes (Death)
  Sender: FDA-Public Use
  Company Number: TCI2011A02332

PATIENT
  Age: 62 Year
  Sex: Male

DRUGS (3)
  1. ACTOS [Suspect]
     Indication: TYPE 2 DIABETES MELLITUS
     Dosage: 15 MG (15 MG, 1 D) PER ORAL
     Route: 048
     Dates: start: 20081212
  2. EICOSAPENTAENOIC ACID [Concomitant]
  3. FIBRATES [Concomitant]

REACTIONS (2)
  - ELECTROCARDIOGRAM ST-T CHANGE [None]
  - SUDDEN DEATH [None]
